FAERS Safety Report 10969199 (Version 1)
Quarter: 2015Q1

REPORT INFORMATION
  Report Type: Spontaneous
  Country: US (occurrence: US)
  Receive Date: 20150331
  Receipt Date: 20150331
  Transmission Date: 20150721
  Serious: Yes (Death, Other)
  Sender: FDA-Public Use
  Company Number: US-AMGEN-USASP2015029811

PATIENT
  Sex: Female

DRUGS (3)
  1. PREDNISONE. [Suspect]
     Active Substance: PREDNISONE
     Indication: PRODUCT USED FOR UNKNOWN INDICATION
     Dosage: 60 MG, QD
     Route: 065
  2. IMURAN [Concomitant]
     Active Substance: AZATHIOPRINE
     Dosage: UNK
  3. ENBREL [Suspect]
     Active Substance: ETANERCEPT
     Indication: PRODUCT USED FOR UNKNOWN INDICATION
     Dosage: UNK
     Route: 065

REACTIONS (14)
  - Back pain [Unknown]
  - Cardiac disorder [Fatal]
  - Asthenia [Unknown]
  - Crying [Unknown]
  - Polymyositis [Unknown]
  - Ataxia [Unknown]
  - Fatigue [Unknown]
  - Gastric disorder [Unknown]
  - Ill-defined disorder [Fatal]
  - Streptococcal infection [Unknown]
  - Seizure [Unknown]
  - Malaise [Unknown]
  - Arnold-Chiari malformation [Unknown]
  - Weight decreased [Unknown]
